FAERS Safety Report 8803736 (Version 1)
Quarter: 2012Q4

REPORT INFORMATION
  Report Type: 
  Country: GB (occurrence: GB)
  Receive Date: 20120924
  Receipt Date: 20120924
  Transmission Date: 20130627
  Serious: Yes (Other)
  Sender: FDA-Public Use
  Company Number: GB-PFIZER INC-2012231917

PATIENT
  Sex: Male

DRUGS (2)
  1. CHAMPIX [Suspect]
     Indication: SMOKING CESSATION THERAPY
     Dosage: Initial dose
     Dates: start: 2012, end: 2012
  2. CHAMPIX [Suspect]
     Dosage: Maintenance dose
     Dates: start: 2012, end: 2012

REACTIONS (1)
  - Physical assault [Unknown]
